FAERS Safety Report 5622645-3 (Version None)
Quarter: 2008Q1

REPORT INFORMATION
  Report Type: 
  Country: None (occurrence: None)
  Receive Date: 20080211
  Receipt Date: 20080211
  Transmission Date: 20080703
  Serious: Yes (Other)
  Sender: FDA-Public Use
  Company Number: None

PATIENT
  Age: 52 Year
  Sex: Male
  Weight: 74.8435 kg

DRUGS (2)
  1. DILANTIN [Suspect]
     Indication: CONVULSION
     Dosage: 100 MG  5/DAY  PO  (OLD TYPE FROM 1983)
     Route: 048
     Dates: start: 20071215, end: 20080210
  2. DILANTIN [Suspect]
     Indication: CONVULSION
     Dosage: 100 MG  5/DAY  PO  (OLD TYPE FROM 1983)
     Route: 048
     Dates: start: 19830101

REACTIONS (7)
  - CHEST PAIN [None]
  - CONSTIPATION [None]
  - CONVULSION [None]
  - DIZZINESS [None]
  - PHARMACEUTICAL PRODUCT COMPLAINT [None]
  - SKIN IRRITATION [None]
  - SOMNOLENCE [None]
